FAERS Safety Report 4326012-4 (Version None)
Quarter: 2004Q1

REPORT INFORMATION
  Report Type: 
  Country: None (occurrence: None)
  Receive Date: 20040324
  Receipt Date: 20040310
  Transmission Date: 20041129
  Serious: Yes (Death)
  Sender: FDA-Public Use
  Company Number: EWC040338390

PATIENT
  Age: 45 Year
  Sex: Male

DRUGS (2)
  1. XIGRIS [Suspect]
     Dosage: 200 MG DAY
     Dates: start: 20040303, end: 20040304
  2. HEPARIN [Concomitant]

REACTIONS (1)
  - HAEMORRHAGE INTRACRANIAL [None]
